FAERS Safety Report 10025524 (Version 1)
Quarter: 2014Q1

REPORT INFORMATION
  Report Type: Spontaneous
  Country: GB (occurrence: GB)
  Receive Date: 20140320
  Receipt Date: 20140320
  Transmission Date: 20141002
  Serious: Yes (Life-Threatening, Hospitalization)
  Sender: FDA-Public Use
  Company Number: GB-ACTAVIS-2014-04969

PATIENT
  Age: 57 Year
  Sex: Female
  Weight: 50 kg

DRUGS (5)
  1. IBUPROFEN (UNKNOWN) [Suspect]
     Indication: PAIN
     Dosage: 400 MG, UNK
     Route: 048
     Dates: start: 201301, end: 201402
  2. TENOFOVIR [Suspect]
     Indication: HIV INFECTION
     Dosage: 245 MG, DAILY
     Route: 048
     Dates: start: 201312, end: 201402
  3. ATRIPLA [Concomitant]
     Indication: HIV INFECTION
     Dosage: 1 DF, QHS
     Route: 048
     Dates: start: 201312, end: 201402
  4. CO-TRIMOXAZOLE [Concomitant]
     Indication: HIV INFECTION
     Dosage: 480 MG, DAILY
     Route: 048
     Dates: start: 201312, end: 201402
  5. PROCHLORPERAZINE [Concomitant]
     Indication: NAUSEA
     Dosage: 5 MG, TID
     Route: 048
     Dates: start: 201312, end: 201402

REACTIONS (5)
  - Renal impairment [Recovering/Resolving]
  - Lethargy [Recovering/Resolving]
  - Diarrhoea [Recovering/Resolving]
  - Weight decreased [Recovering/Resolving]
  - Malaise [Recovering/Resolving]
